FAERS Safety Report 8465157-4 (Version None)
Quarter: 2012Q2

REPORT INFORMATION
  Report Type: 
  Country: None (occurrence: None)
  Receive Date: 20120626
  Receipt Date: 20120620
  Transmission Date: 20120825
  Serious: Yes (Other)
  Sender: FDA-Public Use
  Company Number: US-PFIZER INC-2012149198

PATIENT
  Sex: Female
  Weight: 99.61 kg

DRUGS (16)
  1. LOVAZA [Concomitant]
     Dosage: 2 G, 2X/DAY
     Route: 048
  2. PLAVIX [Concomitant]
     Dosage: 75 MG, 1X/DAY
     Route: 048
  3. DELTASONE [Concomitant]
     Dosage: 5 MG (TAKES 1 1/2 DAILY)
     Route: 048
  4. HALCION [Concomitant]
     Dosage: 0.25 MG, AS NEEDED NIGHTLY
     Route: 048
  5. HUMIRA [Concomitant]
     Dosage: 40 MG/0.8ML, (INJECT 40 MG INTO THE SKIN ONCE)
  6. ESTRACE [Concomitant]
     Dosage: 1 MG, 1X/DAY
     Route: 048
  7. PLAQUENIL [Concomitant]
     Dosage: 200 MG, 2X/DAY
     Route: 048
  8. MULTIPLE VITAMINS [Concomitant]
     Dosage: 1 DF, 1X/DAY
     Route: 048
  9. ZOCOR [Concomitant]
     Dosage: 40 MG, 1X/DAY
     Route: 048
  10. VITAMIN D [Concomitant]
     Dosage: 2000 IU, UNK
     Route: 048
  11. VITAMIN A AND D [Concomitant]
     Dosage: UNK
     Route: 061
  12. FLOVENT [Concomitant]
     Dosage: 220 MCG/ACT, (INHALE 2 PUFFS INTO THE LUNGS DAILY)
  13. GLUCOSAMINE CHONDROITIN [Concomitant]
     Dosage: 1 DF, 2X/DAY
     Route: 048
  14. CORGARD [Concomitant]
     Dosage: 60 MG, 1X/DAY
     Route: 048
  15. TOBREX [Concomitant]
     Dosage: 0.3 %, 3X/DAY
     Route: 047
  16. PROTONIX [Suspect]
     Dosage: 40 MG, 1X/DAY
     Route: 048

REACTIONS (6)
  - ARTERIOSCLEROSIS CORONARY ARTERY [None]
  - RHEUMATOID ARTHRITIS [None]
  - ESSENTIAL HYPERTENSION [None]
  - SLEEP APNOEA SYNDROME [None]
  - HYPERLIPIDAEMIA [None]
  - OBESITY [None]
